FAERS Safety Report 9731111 (Version 2)
Quarter: 2013Q4

REPORT INFORMATION
  Report Type: Report from Study
  Country: FR (occurrence: FR)
  Receive Date: 20131203
  Receipt Date: 20131203
  Transmission Date: 20140711
  Serious: Yes (Other)
  Sender: FDA-Public Use
  Company Number: FR-ASTELLAS-2013EU008214

PATIENT
  Age: 74 Year
  Sex: Male
  Weight: 72 kg

DRUGS (9)
  1. ENZALUTAMIDE [Suspect]
     Indication: PROSTATE CANCER
     Dosage: 160 MG, UNKNOWN/D
     Route: 048
     Dates: start: 20130731
  2. SOPHIDONE [Concomitant]
     Indication: PAIN
     Dosage: 16 MG, BID
     Route: 048
     Dates: start: 20130809
  3. OXYNORM [Concomitant]
     Indication: PAIN
     Dosage: 5 MG, OTHER
     Route: 048
     Dates: start: 20130719
  4. RIVOTRIL [Concomitant]
     Indication: PAIN
     Dosage: 10 DROPS, UNKNOWN/D
     Route: 048
     Dates: start: 20130809
  5. ZANIDIP [Concomitant]
     Dosage: 20 MG, UID/QD
     Route: 048
  6. INIPOMP [Concomitant]
     Indication: PROPHYLAXIS
     Dosage: 20 UG, UID/QD
     Route: 048
     Dates: start: 20130809
  7. BIPROFENID [Concomitant]
     Indication: PAIN
     Dosage: 100 MG, BID
     Route: 048
     Dates: start: 20130809
  8. LYRICA [Concomitant]
     Indication: PAIN
     Dosage: 150 MG, BID
     Route: 048
     Dates: start: 20130809
  9. ACUPAN [Concomitant]
     Indication: PAIN
     Dosage: UNK
     Route: 048
     Dates: start: 20130220

REACTIONS (5)
  - Hypertensive crisis [Recovered/Resolved]
  - Arrhythmia [Recovered/Resolved]
  - Confusional state [Recovered/Resolved]
  - Nausea [Recovered/Resolved]
  - Vomiting [Recovered/Resolved]
